FAERS Safety Report 8386747-3 (Version None)
Quarter: 2012Q2

REPORT INFORMATION
  Report Type: 
  Country: None (occurrence: None)
  Receive Date: 20120525
  Receipt Date: 20120522
  Transmission Date: 20120825
  Serious: No
  Sender: FDA-Public Use
  Company Number: US-PFIZER INC-2012124729

PATIENT
  Sex: Female
  Weight: 52.154 kg

DRUGS (3)
  1. LISINOPRIL [Concomitant]
     Indication: HYPERTENSION
     Dosage: 40 MG, 1X/DAY
  2. XALATAN [Suspect]
     Indication: GLAUCOMA
     Dosage: 1 GTT, IN EACH EYE
     Route: 047
  3. METOPROLOL [Concomitant]
     Indication: HYPERTENSION
     Dosage: 25 MG, 1X/DAY

REACTIONS (4)
  - DARK CIRCLES UNDER EYES [None]
  - DRUG INEFFECTIVE [None]
  - SKIN DISCOLOURATION [None]
  - GROWTH OF EYELASHES [None]
